FAERS Safety Report 17732715 (Version 3)
Quarter: 2023Q1

REPORT INFORMATION
  Report Type: Spontaneous
  Country: US (occurrence: None)
  Receive Date: 20200501
  Receipt Date: 20230227
  Transmission Date: 20230418
  Serious: Yes (Death, Other)
  Sender: FDA-Public Use
  Company Number: 2020SE55784

PATIENT
  Age: 23023 Day
  Sex: Female
  Weight: 138.3 kg

DRUGS (34)
  1. PRILOSEC [Suspect]
     Active Substance: OMEPRAZOLE MAGNESIUM
     Indication: Gastrooesophageal reflux disease
     Route: 048
     Dates: start: 199801, end: 200306
  2. PRILOSEC [Suspect]
     Active Substance: OMEPRAZOLE MAGNESIUM
     Indication: Gastrooesophageal reflux disease
     Route: 048
     Dates: start: 1998, end: 2015
  3. PRILOSEC [Suspect]
     Active Substance: OMEPRAZOLE MAGNESIUM
     Indication: Gastrooesophageal reflux disease
     Dosage: GENERIC
     Route: 065
     Dates: start: 2015
  4. PRILOSEC OTC [Suspect]
     Active Substance: OMEPRAZOLE MAGNESIUM
     Indication: Gastrooesophageal reflux disease
     Route: 048
     Dates: start: 199801, end: 200306
  5. PRILOSEC OTC [Suspect]
     Active Substance: OMEPRAZOLE MAGNESIUM
     Indication: Gastrooesophageal reflux disease
     Route: 048
     Dates: start: 2003, end: 2015
  6. PANTOPRAZOLE [Suspect]
     Active Substance: PANTOPRAZOLE
     Indication: Gastrooesophageal reflux disease
     Route: 065
  7. PANTOPRAZOLE [Suspect]
     Active Substance: PANTOPRAZOLE
     Indication: Gastrooesophageal reflux disease
     Route: 065
     Dates: start: 2015
  8. MUPIROCIN [Concomitant]
     Active Substance: MUPIROCIN
  9. OXYCODONE [Concomitant]
     Active Substance: OXYCODONE
  10. DAKINS FULL [Concomitant]
     Active Substance: SODIUM HYPOCHLORITE
  11. CIPROFLOXACIN [Concomitant]
     Active Substance: CIPROFLOXACIN
  12. LISINOPRIL [Concomitant]
     Active Substance: LISINOPRIL
  13. FOLIC ACID [Concomitant]
     Active Substance: FOLIC ACID
  14. SYMBICORT [Concomitant]
     Active Substance: BUDESONIDE\FORMOTEROL FUMARATE DIHYDRATE
  15. FAMOTIDINE [Concomitant]
     Active Substance: FAMOTIDINE
  16. CLOPIDOGREL [Concomitant]
     Active Substance: CLOPIDOGREL BISULFATE
  17. LEVEMIR [Concomitant]
     Active Substance: INSULIN DETEMIR
  18. ONDANSETRON [Concomitant]
     Active Substance: ONDANSETRON
  19. BISOPROLOL [Concomitant]
     Active Substance: BISOPROLOL
  20. ZOLPIDEM [Concomitant]
     Active Substance: ZOLPIDEM TARTRATE
  21. HEPARIN [Concomitant]
     Active Substance: HEPARIN SODIUM
  22. VICODIN [Concomitant]
     Active Substance: ACETAMINOPHEN\HYDROCODONE BITARTRATE
  23. BENZONATATE [Concomitant]
     Active Substance: BENZONATATE
  24. LATANOPROST [Concomitant]
     Active Substance: LATANOPROST
  25. VICTOZA [Concomitant]
     Active Substance: LIRAGLUTIDE
  26. CEPHALEXIN [Concomitant]
     Active Substance: CEPHALEXIN
  27. BUMETANIDE [Concomitant]
     Active Substance: BUMETANIDE
  28. CEFDINIR [Concomitant]
     Active Substance: CEFDINIR
  29. SIMVASTATIN [Concomitant]
     Active Substance: SIMVASTATIN
  30. METFORMIN [Concomitant]
     Active Substance: METFORMIN HYDROCHLORIDE
  31. BYDUREON [Concomitant]
     Active Substance: EXENATIDE
  32. DECAVAC [Concomitant]
     Active Substance: CLOSTRIDIUM TETANI TOXOID ANTIGEN (FORMALDEHYDE INACTIVATED)\CORYNEBACTERIUM DIPHTHERIAE TOXOID ANTI
  33. AMMONIUM LACTATE [Concomitant]
     Active Substance: AMMONIUM LACTATE
  34. GRANULEX [Concomitant]
     Active Substance: CASTOR OIL\PERU BALSAM\TRYPSIN

REACTIONS (5)
  - Death [Fatal]
  - Acute kidney injury [Unknown]
  - Chronic kidney disease [Unknown]
  - Renal failure [Unknown]
  - Nephrogenic anaemia [Unknown]

NARRATIVE: CASE EVENT DATE: 20140401
